FAERS Safety Report 8356358-4 (Version None)
Quarter: 2012Q2

REPORT INFORMATION
  Report Type: 
  Country: None (occurrence: None)
  Receive Date: 20120514
  Receipt Date: 20120430
  Transmission Date: 20120825
  Serious: Yes (Death, Disabling, Other)
  Sender: FDA-Public Use
  Company Number: GB-RANBAXY-2007RR-06329

PATIENT

DRUGS (5)
  1. SOFRAMYCIN [Concomitant]
     Indication: EYE INFECTION
     Route: 047
  2. TRAMADOL HYDROCHLORIDE [Concomitant]
     Indication: PAIN IN EXTREMITY
     Dosage: 30 MG, TID
     Route: 048
     Dates: start: 20060602, end: 20060710
  3. GABAPENTIN [Suspect]
     Indication: NEUROPATHY PERIPHERAL
     Dosage: 600 MG, TID
     Route: 048
     Dates: start: 20060606
  4. DICLOFENAC [Concomitant]
     Indication: PAIN
     Route: 048
     Dates: start: 20050101
  5. ACETAMINOPHEN [Concomitant]
     Indication: PAIN IN EXTREMITY
     Dosage: 50 MG, QID
     Route: 048

REACTIONS (8)
  - MYALGIA [None]
  - PAIN [None]
  - ATAXIA [None]
  - ABASIA [None]
  - DIPLOPIA [None]
  - CONDITION AGGRAVATED [None]
  - IMPAIRED DRIVING ABILITY [None]
  - ARTHRALGIA [None]
